FAERS Safety Report 23661033 (Version 1)
Quarter: 2024Q1

REPORT INFORMATION
  Report Type: Report from Study
  Country: IL (occurrence: IL)
  Receive Date: 20240322
  Receipt Date: 20240322
  Transmission Date: 20240410
  Serious: Yes (Other)
  Sender: FDA-Public Use
  Company Number: IL-ABBVIE-5686472

PATIENT
  Age: 55 Year
  Sex: Female
  Weight: 61 kg

DRUGS (5)
  1. QULIPTA [Suspect]
     Active Substance: ATOGEPANT
     Indication: Migraine
     Dosage: 60 MILLIGRAM
     Route: 048
     Dates: start: 20240205
  2. VOLTAREN [Concomitant]
     Active Substance: DICLOFENAC SODIUM
     Indication: Migraine
     Dosage: FREQUENCY TEXT: AS NEEDED
     Route: 048
     Dates: start: 2019
  3. Prolol [Concomitant]
     Indication: Migraine
     Route: 048
     Dates: start: 2014
  4. ELETRIPTAN HYDROBROMIDE [Concomitant]
     Active Substance: ELETRIPTAN HYDROBROMIDE
     Indication: Migraine
     Route: 048
     Dates: start: 2004
  5. MERCILON [Concomitant]
     Active Substance: DESOGESTREL\ETHINYL ESTRADIOL
     Indication: Contraception
     Dates: start: 20230104

REACTIONS (1)
  - Supraventricular tachycardia [Recovered/Resolved]

NARRATIVE: CASE EVENT DATE: 20240311
